FAERS Safety Report 5421150-7 (Version None)
Quarter: 2007Q3

REPORT INFORMATION
  Report Type: 
  Country: None (occurrence: None)
  Receive Date: 20070816
  Receipt Date: 20070806
  Transmission Date: 20080115
  Serious: Yes (Hospitalization)
  Sender: FDA-Public Use
  Company Number: 2007328244

PATIENT
  Age: 50 Year
  Sex: Male
  Weight: 86.2 kg

DRUGS (1)
  1. ROGAINE [Suspect]
     Indication: ALOPECIA
     Dosage: ONCE DAILY, TOPICAL
     Route: 061
     Dates: start: 20070601, end: 20070802

REACTIONS (5)
  - DYSPHAGIA [None]
  - FLUSHING [None]
  - HYPOAESTHESIA EYE [None]
  - HYPOAESTHESIA FACIAL [None]
  - PHARYNGOLARYNGEAL PAIN [None]
